FAERS Safety Report 7304520-1 (Version None)
Quarter: 2011Q1

REPORT INFORMATION
  Report Type: 
  Country: None (occurrence: None)
  Receive Date: 20110221
  Receipt Date: 20110202
  Transmission Date: 20110831
  Serious: Yes (Hospitalization)
  Sender: FDA-Public Use
  Company Number: JP-AMGEN-JPNCT2011000266

PATIENT
  Age: 80 Year
  Sex: Male
  Weight: 40 kg

DRUGS (14)
  1. ALOXI [Concomitant]
     Dosage: UNK
     Route: 042
  2. FLUOROURACIL [Concomitant]
     Route: 041
     Dates: start: 20101007, end: 20101007
  3. IRINOTECAN HYDROCHLORIDE [Concomitant]
     Indication: COLORECTAL CANCER
     Route: 041
     Dates: start: 20101007, end: 20101007
  4. CALSLOT [Concomitant]
     Dosage: UNK
     Route: 048
  5. CORTICOSTEROIDS [Concomitant]
     Indication: PROPHYLAXIS
     Dosage: UNK
     Route: 065
  6. HIRUDOID SOFT [Concomitant]
     Dosage: UNK
     Route: 062
  7. AVOLVE [Concomitant]
     Route: 048
  8. FLUOROURACIL [Concomitant]
     Indication: COLORECTAL CANCER
     Route: 040
     Dates: start: 20101007, end: 20101007
  9. DECADRON [Concomitant]
     Dosage: UNK
     Route: 042
  10. FERROUS CITRATE [Concomitant]
     Dosage: UNK
     Route: 048
  11. PANITUMUMAB [Suspect]
     Dosage: 6 MG/KG, Q2WK
     Route: 041
     Dates: start: 20101007, end: 20101026
  12. AVOLVE [Concomitant]
     Indication: BENIGN PROSTATIC HYPERPLASIA
     Route: 048
  13. CALCIUM LEVOFOLINATE [Concomitant]
     Indication: COLORECTAL CANCER
     Route: 041
     Dates: start: 20101007, end: 20101007
  14. ALOSITOL [Concomitant]
     Dosage: UNK
     Route: 048

REACTIONS (6)
  - STOMATITIS [None]
  - PRURITUS [None]
  - FEBRILE NEUTROPENIA [None]
  - ANAEMIA [None]
  - HYPERKALAEMIA [None]
  - PLATELET COUNT DECREASED [None]
